FAERS Safety Report 5120744-6 (Version None)
Quarter: 2006Q4

REPORT INFORMATION
  Report Type: 
  Country: None (occurrence: None)
  Receive Date: 20061003
  Receipt Date: 20061003
  Transmission Date: 20070319
  Serious: Yes (Life-Threatening, Other)
  Sender: FDA-Public Use
  Company Number: None

PATIENT
  Sex: Female
  Weight: 85.7298 kg

DRUGS (1)
  1. ORTHO EVRA [Suspect]
     Indication: CONTRACEPTION
     Dosage: 1 PATCH 1 PATCH / WK TRANSDERMAL
     Route: 062
     Dates: start: 20030825, end: 20040101

REACTIONS (5)
  - IMPAIRED HEALING [None]
  - INCISION SITE INFECTION [None]
  - MENORRHAGIA [None]
  - PAIN [None]
  - THROMBOSIS [None]
